FAERS Safety Report 10200266 (Version 1)
Quarter: 2014Q2

REPORT INFORMATION
  Report Type: Spontaneous
  Country: US (occurrence: US)
  Receive Date: 20140527
  Receipt Date: 20140527
  Transmission Date: 20141212
  Serious: No
  Sender: FDA-Public Use
  Company Number: US-GILEAD-2014-0103332

PATIENT
  Sex: Male

DRUGS (1)
  1. SOVALDI [Suspect]
     Indication: CHRONIC HEPATITIS C
     Dosage: BID
     Route: 065
     Dates: start: 20140509, end: 20140522

REACTIONS (1)
  - Accidental overdose [Recovered/Resolved]
